FAERS Safety Report 5601572-1 (Version None)
Quarter: 2008Q1

REPORT INFORMATION
  Report Type: 
  Country: None (occurrence: None)
  Receive Date: 20080124
  Receipt Date: 20080116
  Transmission Date: 20080703
  Serious: Yes (Hospitalization)
  Sender: FDA-Public Use
  Company Number: US-KINGPHARMUSA00001-K200800054

PATIENT

DRUGS (12)
  1. ALTACE [Suspect]
     Dosage: 2.5 MG, QD
     Route: 048
  2. BACTRIM FORTE /00086101/ [Suspect]
     Indication: INFECTION
     Dosage: 1920 MG, QD
     Route: 048
  3. ACTISKENAN [Suspect]
     Dosage: UNK, QD
     Route: 048
  4. LANTUS [Suspect]
     Indication: DIABETES MELLITUS
     Dosage: 26 IU, QD
     Route: 058
  5. LASILIX /00032601/ [Suspect]
     Dosage: 80 MG, QD
     Route: 048
  6. INFLUENZA VIRUS VACCINE /00027001/ [Suspect]
     Indication: PROPHYLAXIS
     Dosage: 1 U, SINGLE
     Route: 058
     Dates: start: 20071021, end: 20071021
  7. TAHOR [Suspect]
     Indication: INFARCTION
     Dosage: 40 MG, QD
     Route: 048
  8. FUCIDINE CAP [Suspect]
     Indication: INFECTION
     Dosage: 1.5 G, QD
     Route: 048
  9. INEXIUM /01479302/ [Suspect]
     Dosage: 1 U, QD
     Route: 048
  10. STILNOX /00914901/ [Suspect]
     Dosage: 10 MG, QD
     Route: 048
  11. PREVISCAN /00789001/ [Suspect]
     Dosage: 15 MG, QD
     Route: 048
  12. SERESTA [Suspect]
     Dosage: 50 MG, QD
     Route: 048

REACTIONS (2)
  - MYALGIA [None]
  - RHABDOMYOLYSIS [None]
